FAERS Safety Report 9061442 (Version 1)
Quarter: 2013Q1

REPORT INFORMATION
  Report Type: Spontaneous
  Country: US (occurrence: US)
  Receive Date: 20130204
  Receipt Date: 20130204
  Transmission Date: 20140127
  Serious: Yes (Hospitalization)
  Sender: FDA-Public Use
  Company Number: US-ELI_LILLY_AND_COMPANY-US201301009040

PATIENT
  Sex: Female

DRUGS (3)
  1. HUMALOG LISPRO [Suspect]
  2. HUMALOG 25% LISPRO, 75% NPL [Suspect]
  3. NOVOLOG [Concomitant]

REACTIONS (4)
  - Bronchitis [Unknown]
  - Pneumonia [Unknown]
  - Drug dispensing error [Unknown]
  - Confusional state [Unknown]
